FAERS Safety Report 6322405-4 (Version None)
Quarter: 2009Q3

REPORT INFORMATION
  Report Type: 
  Country: None (occurrence: None)
  Receive Date: 20090824
  Receipt Date: 20090207
  Transmission Date: 20100115
  Serious: No
  Sender: FDA-Public Use
  Company Number: US-ABBOTT-09P-163-0502813-00

PATIENT
  Sex: Male
  Weight: 111.23 kg

DRUGS (12)
  1. NIASPAN [Suspect]
     Indication: BLOOD TRIGLYCERIDES INCREASED
     Route: 048
     Dates: start: 20050101
  2. NIASPAN [Suspect]
     Indication: LOW DENSITY LIPOPROTEIN INCREASED
  3. NIASPAN [Suspect]
     Indication: BLOOD CHOLESTEROL INCREASED
  4. TRICOR [Concomitant]
     Indication: LOW DENSITY LIPOPROTEIN INCREASED
     Route: 048
  5. TRICOR [Concomitant]
     Indication: BLOOD CHOLESTEROL INCREASED
  6. TRICOR [Concomitant]
     Indication: BLOOD TRIGLYCERIDES INCREASED
  7. LIPITOR [Concomitant]
     Indication: BLOOD TRIGLYCERIDES INCREASED
     Route: 048
  8. LIPITOR [Concomitant]
     Indication: BLOOD CHOLESTEROL INCREASED
  9. LIPITOR [Concomitant]
     Indication: LOW DENSITY LIPOPROTEIN INCREASED
  10. HYDROCHLOROTHIAZIDE [Concomitant]
     Indication: HYPERTENSION
     Route: 048
  11. COREG [Concomitant]
     Indication: HYPERTENSION
     Route: 048
  12. ASPIRIN [Concomitant]
     Indication: CARDIAC DISORDER
     Route: 048

REACTIONS (3)
  - ABDOMINAL DISCOMFORT [None]
  - HOT FLUSH [None]
  - PRURITUS [None]
